FAERS Safety Report 5201878-4 (Version None)
Quarter: 2007Q1

REPORT INFORMATION
  Report Type: 
  Country: None (occurrence: None)
  Receive Date: 20070104
  Receipt Date: 20061221
  Transmission Date: 20070707
  Serious: Yes (Hospitalization)
  Sender: FDA-Public Use
  Company Number: 2006-03272

PATIENT
  Age: 63 Year
  Sex: Male
  Weight: 76 kg

DRUGS (2)
  1. VELCADE [Suspect]
     Indication: MULTIPLE MYELOMA
     Dosage: 2.30 MG, UNKNOWN
     Dates: start: 20061005, end: 20061005
  2. DEXAMETHASONE [Suspect]
     Indication: MULTIPLE MYELOMA
     Dosage: 20.00 MG, UNKNOWN
     Dates: start: 20061005, end: 20061005

REACTIONS (4)
  - BUNDLE BRANCH BLOCK LEFT [None]
  - FALL [None]
  - HEAD INJURY [None]
  - SYNCOPE [None]
